FAERS Safety Report 9463948 (Version 1)
Quarter: 2013Q3

REPORT INFORMATION
  Report Type: Spontaneous
  Country: US (occurrence: US)
  Receive Date: 20130819
  Receipt Date: 20130819
  Transmission Date: 20140515
  Serious: Yes (Hospitalization)
  Sender: FDA-Public Use
  Company Number: US-ROXANE LABORATORIES, INC.-2013-RO-01347RO

PATIENT
  Age: 2 Year
  Sex: Male

DRUGS (3)
  1. CALCITRIOL [Suspect]
     Indication: DIALYSIS
     Route: 048
     Dates: start: 20121120, end: 20130715
  2. CHOLECALCIFEROL [Suspect]
     Indication: DIALYSIS
     Route: 048
     Dates: end: 20130715
  3. CALCIUM CARBONATE [Suspect]
     Indication: DIALYSIS
     Route: 048
     Dates: end: 20130715

REACTIONS (1)
  - Hypercalcaemia [Recovered/Resolved]
